FAERS Safety Report 17163979 (Version 1)
Quarter: 2019Q4

REPORT INFORMATION
  Report Type: Spontaneous
  Country: US (occurrence: US)
  Receive Date: 20191217
  Receipt Date: 20191217
  Transmission Date: 20200122
  Serious: No
  Sender: FDA-Public Use
  Company Number: US-JNJFOC-20191210787

PATIENT
  Age: 30 Year
  Sex: Female
  Weight: 53.12 kg

DRUGS (2)
  1. INVEGA SUSTENNA [Suspect]
     Active Substance: PALIPERIDONE PALMITATE
     Indication: CONFUSIONAL STATE
     Route: 030
     Dates: start: 20190731, end: 20190731
  2. INVEGA SUSTENNA [Suspect]
     Active Substance: PALIPERIDONE PALMITATE
     Route: 030
     Dates: start: 20190805, end: 20190805

REACTIONS (10)
  - Amenorrhoea [Not Recovered/Not Resolved]
  - Off label use [Unknown]
  - Swollen tongue [Recovered/Resolved]
  - Muscle twitching [Not Recovered/Not Resolved]
  - Abnormal weight gain [Not Recovered/Not Resolved]
  - Visual impairment [Recovered/Resolved]
  - Acne [Not Recovered/Not Resolved]
  - Product use in unapproved indication [Unknown]
  - Emotional distress [Not Recovered/Not Resolved]
  - Breast discharge [Not Recovered/Not Resolved]

NARRATIVE: CASE EVENT DATE: 20190731
